FAERS Safety Report 24602836 (Version 1)
Quarter: 2024Q4

REPORT INFORMATION
  Report Type: Spontaneous
  Country: AU (occurrence: AU)
  Receive Date: 20241111
  Receipt Date: 20241111
  Transmission Date: 20250114
  Serious: Yes (Other)
  Sender: MYLAN
  Company Number: AU-MYLANLABS-2024M1099420

PATIENT

DRUGS (2)
  1. LYRICA [Suspect]
     Active Substance: PREGABALIN
     Indication: Product used for unknown indication
     Dosage: UNK
     Route: 065
  2. LYRICA [Suspect]
     Active Substance: PREGABALIN
     Dosage: UNK (DOSE TAPERED DOWN)
     Route: 065

REACTIONS (7)
  - Suicide attempt [Unknown]
  - Migraine [Unknown]
  - Anger [Unknown]
  - Heart rate increased [Unknown]
  - Depression [Unknown]
  - Cognitive disorder [Unknown]
  - Feeling abnormal [Unknown]
